FAERS Safety Report 8143641-0 (Version None)
Quarter: 2012Q1

REPORT INFORMATION
  Report Type: 
  Country: None (occurrence: None)
  Receive Date: 20120103
  Receipt Date: 20110920
  Transmission Date: 20120608
  Serious: No
  Sender: FDA-Public Use
  Company Number: AE-2011-001689

PATIENT
  Age: 57 Year
  Sex: Female
  Weight: 69.8539 kg

DRUGS (9)
  1. LISINOPRIL [Concomitant]
  2. PEGASYS [Concomitant]
  3. OMEPRAZOLE [Concomitant]
  4. RIBAVIRIN [Concomitant]
  5. L-THYROXINE (LEVOTHYROXINE) [Concomitant]
  6. GLUCOSAMINE (GLUCOSAMINE) [Concomitant]
  7. CALCIUM CARBONATE [Concomitant]
  8. INCIVEK [Suspect]
     Dosage: 2250 MG (750 MG, 3 IN 1 D), ORAL
     Route: 048
     Dates: start: 20110812
  9. CARVEDILOL (CARVEDILOL) [Concomitant]

REACTIONS (8)
  - SINUSITIS [None]
  - FATIGUE [None]
  - ANAL PRURITUS [None]
  - NASAL DRYNESS [None]
  - RASH PRURITIC [None]
  - PRURITUS [None]
  - ANORECTAL DISCOMFORT [None]
  - DYSPNOEA [None]
